FAERS Safety Report 14385408 (Version 2)
Quarter: 2018Q1

REPORT INFORMATION
  Report Type: Spontaneous
  Country: US (occurrence: US)
  Receive Date: 20180115
  Receipt Date: 20180115
  Transmission Date: 20180509
  Serious: Yes (Other)
  Sender: FDA-Public Use
  Company Number: US-SA-2016SA232647

PATIENT
  Age: 47 Year
  Sex: Female
  Weight: 90 kg

DRUGS (6)
  1. CYCLOPHOSPHAMIDE. [Concomitant]
     Active Substance: CYCLOPHOSPHAMIDE
     Route: 065
  2. EPIRUBICIN [Concomitant]
     Active Substance: EPIRUBICIN
     Route: 065
  3. TAXOTERE [Suspect]
     Active Substance: DOCETAXEL
     Indication: BREAST CANCER FEMALE
     Route: 051
     Dates: start: 20080409, end: 20080409
  4. TAXOTERE [Suspect]
     Active Substance: DOCETAXEL
     Indication: BREAST CANCER FEMALE
     Route: 051
     Dates: start: 20080201, end: 20080201
  5. CYTOXAN [Concomitant]
     Active Substance: CYCLOPHOSPHAMIDE
     Route: 065
  6. EPIRUBICIN [Concomitant]
     Active Substance: EPIRUBICIN
     Route: 065

REACTIONS (8)
  - Injury [Unknown]
  - Psychological trauma [Unknown]
  - Anxiety [Unknown]
  - Hair texture abnormal [Unknown]
  - Emotional distress [Unknown]
  - Alopecia [Recovering/Resolving]
  - Impaired quality of life [Unknown]
  - Hair colour changes [Unknown]

NARRATIVE: CASE EVENT DATE: 200804
